FAERS Safety Report 19074028 (Version 1)
Quarter: 2021Q1

REPORT INFORMATION
  Report Type: Spontaneous
  Country: AU (occurrence: AU)
  Receive Date: 20210330
  Receipt Date: 20210330
  Transmission Date: 20210420
  Serious: Yes (Other)
  Sender: FDA-Public Use
  Company Number: AU-ASTRAZENECA-2021A201539

PATIENT
  Age: 21 Year

DRUGS (4)
  1. OLANZAPINE. [Concomitant]
     Active Substance: OLANZAPINE
     Indication: PRODUCT USED FOR UNKNOWN INDICATION
  2. QUETIAPINE. [Suspect]
     Active Substance: QUETIAPINE
     Indication: PRODUCT USED FOR UNKNOWN INDICATION
     Route: 065
  3. ZUCLOPENTHIXOL [Concomitant]
     Active Substance: ZUCLOPENTHIXOL
     Indication: PRODUCT USED FOR UNKNOWN INDICATION
     Dosage: 90 MG EVERY 2 WEEKS
  4. AGOMELATINE [Suspect]
     Active Substance: AGOMELATINE
     Indication: PRODUCT USED FOR UNKNOWN INDICATION
     Route: 065
     Dates: start: 20200922

REACTIONS (10)
  - Anxiety [Unknown]
  - Suicidal ideation [Unknown]
  - Hallucination [Unknown]
  - Mental disorder [Unknown]
  - Fear [Unknown]
  - Thinking abnormal [Unknown]
  - Middle insomnia [Unknown]
  - Abnormal dreams [Unknown]
  - Delusion [Unknown]
  - Insomnia [Unknown]

NARRATIVE: CASE EVENT DATE: 202009
